FAERS Safety Report 7073016-7 (Version None)
Quarter: 2010Q4

REPORT INFORMATION
  Report Type: 
  Country: None (occurrence: None)
  Receive Date: 20101029
  Receipt Date: 20100524
  Transmission Date: 20110411
  Serious: No
  Sender: FDA-Public Use
  Company Number: A0854517A

PATIENT
  Age: 74 Year
  Sex: Female

DRUGS (13)
  1. ADVAIR DISKUS 100/50 [Suspect]
     Indication: ASTHMA
     Dosage: 1PUFF TWICE PER DAY
     Route: 055
  2. NEBULIZER [Concomitant]
  3. CLARITIN [Concomitant]
  4. SALSALATE [Concomitant]
  5. MUCINEX DM [Concomitant]
  6. FLUTICASONE PROPIONATE [Concomitant]
  7. SINGULAIR [Concomitant]
  8. OMEPRAZOLE [Concomitant]
  9. DILTIAZEM [Concomitant]
  10. POTASSIUM CHLORIDE [Concomitant]
  11. FUROSEMIDE [Concomitant]
  12. MULTIPLE VITAMIN [Concomitant]
  13. UNKNOWN MEDICATION [Concomitant]

REACTIONS (3)
  - ORAL DISORDER [None]
  - ORAL MUCOSAL ERUPTION [None]
  - PRODUCT QUALITY ISSUE [None]
